FAERS Safety Report 5439518-1 (Version None)
Quarter: 2007Q3

REPORT INFORMATION
  Report Type: 
  Country: None (occurrence: None)
  Receive Date: 20070831
  Receipt Date: 20070823
  Transmission Date: 20080115
  Serious: Yes (Other)
  Sender: FDA-Public Use
  Company Number: GB-ROCHE-513645

PATIENT
  Age: 69 Year
  Sex: Female
  Weight: 72 kg

DRUGS (6)
  1. ORLISTAT [Suspect]
     Indication: OBESITY
     Route: 048
     Dates: start: 20070216
  2. LEVOTHYROXINE SODIUM [Concomitant]
     Indication: HYPOTHYROIDISM
     Route: 048
  3. CIPRALEX [Concomitant]
     Indication: ANXIETY
     Dosage: DRUG NAME REPORTED AS CIRPRALEX.
     Route: 048
  4. LOSARTAN POTASSIUM [Concomitant]
     Indication: HYPERTENSION
     Dosage: GIVEN 50 MG IN THE MORNING (MANE) AND 25 MG AT NIGHT (NOCTE).
     Route: 048
  5. FRUSEMIDE [Concomitant]
     Indication: HYPERTENSION
     Route: 048
  6. OMEPRAZOLE [Concomitant]
     Indication: ILL-DEFINED DISORDER
     Route: 048

REACTIONS (3)
  - FEELING ABNORMAL [None]
  - PALLOR [None]
  - TRANSIENT ISCHAEMIC ATTACK [None]
